FAERS Safety Report 24898845 (Version 1)
Quarter: 2025Q1

REPORT INFORMATION
  Report Type: Spontaneous
  Country: ES (occurrence: ES)
  Receive Date: 20250129
  Receipt Date: 20250129
  Transmission Date: 20250409
  Serious: Yes (Hospitalization)
  Sender: BOEHRINGER INGELHEIM
  Company Number: None

PATIENT
  Age: 89 Year
  Sex: Male
  Weight: 75 kg

DRUGS (2)
  1. JENTADUETO [Suspect]
     Active Substance: LINAGLIPTIN\METFORMIN HYDROCHLORIDE
     Indication: Diabetes mellitus
     Route: 048
     Dates: start: 20240813, end: 20241104
  2. VALSARTAN [Suspect]
     Active Substance: VALSARTAN
     Indication: Hypertension
     Route: 048
     Dates: start: 20240804, end: 20241104

REACTIONS (3)
  - Hyperkalaemia [Recovered/Resolved]
  - Metabolic acidosis [Recovered/Resolved]
  - Respiratory alkalosis [Recovered/Resolved]

NARRATIVE: CASE EVENT DATE: 20241104
